FAERS Safety Report 4485131-2 (Version None)
Quarter: 2004Q4

REPORT INFORMATION
  Report Type: 
  Country: None (occurrence: None)
  Receive Date: 20041026
  Receipt Date: 20031106
  Transmission Date: 20050328
  Serious: No
  Sender: FDA-Public Use
  Company Number: US-BRISTOL-MYERS SQUIBB COMPANY-12429668

PATIENT
  Age: 55 Year
  Sex: Female
  Weight: 107 kg

DRUGS (3)
  1. GLUCOPHAGE XR [Suspect]
     Indication: DIABETES MELLITUS
     Route: 048
     Dates: start: 20031023
  2. GLUCOTROL XL [Concomitant]
  3. LOTREL [Concomitant]

REACTIONS (3)
  - ABDOMINAL PAIN [None]
  - DYSPEPSIA [None]
  - NAUSEA [None]
